FAERS Safety Report 8323004-5 (Version None)
Quarter: 2012Q2

REPORT INFORMATION
  Report Type: 
  Country: None (occurrence: None)
  Receive Date: 20120430
  Receipt Date: 20120416
  Transmission Date: 20120825
  Serious: Yes (Hospitalization, Other)
  Sender: FDA-Public Use
  Company Number: US-MYLANLABS-2010AC000039

PATIENT
  Age: 71 Year
  Sex: Male
  Weight: 86.18 kg

DRUGS (15)
  1. ADVAIR DISKUS 100/50 [Concomitant]
  2. ASPIRIN [Concomitant]
  3. SPIRIVA [Concomitant]
  4. UNIPHYL [Concomitant]
  5. ZOCOR [Concomitant]
  6. IMDUR [Concomitant]
  7. VICODIN [Concomitant]
  8. HYDRALAZINE HCL [Concomitant]
  9. NEXIUM [Concomitant]
  10. WARFARIN SODIUM [Concomitant]
  11. FUROSEMIDE [Concomitant]
  12. ZESTRIL [Concomitant]
  13. ALBUTEROL [Concomitant]
  14. POTASSIUM CHLORIDE [Concomitant]
  15. DIGOXIN [Suspect]
     Indication: CARDIAC DISORDER
     Route: 048
     Dates: start: 20030423, end: 20080419

REACTIONS (17)
  - PAIN [None]
  - INJURY [None]
  - EMOTIONAL DISTRESS [None]
  - ILL-DEFINED DISORDER [None]
  - CARDIAC VALVE DISEASE [None]
  - ECONOMIC PROBLEM [None]
  - SURGERY [None]
  - HYPERTENSION [None]
  - HOSPITALISATION [None]
  - CARDIAC DISORDER [None]
  - MYOCARDIAL INFARCTION [None]
  - BLOOD CHOLESTEROL INCREASED [None]
  - BLOOD TRIGLYCERIDES INCREASED [None]
  - CARDIAC PACEMAKER INSERTION [None]
  - ATRIAL FIBRILLATION [None]
  - ATRIAL FLUTTER [None]
  - CORONARY ARTERY DISEASE [None]
